FAERS Safety Report 7090421-3 (Version None)
Quarter: 2010Q4

REPORT INFORMATION
  Report Type: 
  Country: None (occurrence: None)
  Receive Date: 20101012
  Receipt Date: 20100113
  Transmission Date: 20110411
  Serious: Yes (Hospitalization)
  Sender: FDA-Public Use
  Company Number: 1000013165

PATIENT
  Age: 76 Year
  Sex: Female

DRUGS (6)
  1. LEXAPRO [Suspect]
     Indication: DEPRESSION
     Dosage: 5 MG (5  MG, 1 IN 1 D), ORAL
     Route: 048
     Dates: start: 20091101, end: 20090101
  2. LEXAPRO [Suspect]
     Indication: DEPRESSION
     Dosage: 10 MG (10 MG, 1 IN 1 D), ORAL
     Route: 048
     Dates: start: 20090101, end: 20100201
  3. LEVODOPA [Concomitant]
  4. CARBIDOPA [Concomitant]
  5. RITALIN [Concomitant]
  6. RAMIPRIL [Concomitant]

REACTIONS (1)
  - BLOOD SODIUM DECREASED [None]
